FAERS Safety Report 8920640 (Version 1)
Quarter: 2012Q4

REPORT INFORMATION
  Report Type: Report from Study
  Country: NL (occurrence: NL)
  Receive Date: 20121121
  Receipt Date: 20121121
  Transmission Date: 20130627
  Serious: Yes (Hospitalization)
  Sender: FDA-Public Use
  Company Number: NL-ROCHE-1153573

PATIENT
  Age: 58 Year
  Sex: Male

DRUGS (3)
  1. PEG-INTERFERON ALFA 2A [Suspect]
     Indication: HEPATITIS C
     Route: 058
  2. RIBAVIRIN [Suspect]
     Indication: HEPATITIS C
     Route: 048
  3. INCIVO [Concomitant]
     Indication: HEPATITIS C
     Route: 048

REACTIONS (2)
  - Decreased appetite [Recovering/Resolving]
  - Malaise [Recovering/Resolving]
